FAERS Safety Report 5796283-6 (Version None)
Quarter: 2008Q2

REPORT INFORMATION
  Report Type: 
  Country: None (occurrence: None)
  Receive Date: 20080627
  Receipt Date: 20080624
  Transmission Date: 20081010
  Serious: Yes (Death, Hospitalization)
  Sender: FDA-Public Use
  Company Number: CLOF-1000188

PATIENT
  Age: 68 Year
  Sex: Female
  Weight: 83 kg

DRUGS (8)
  1. CLOLAR [Suspect]
     Indication: ACUTE LYMPHOCYTIC LEUKAEMIA
     Dosage: 40 MG/M2, QDX5, INTRAVENOUS
     Route: 042
     Dates: start: 20080508, end: 20080512
  2. ACYCLOVIR [Concomitant]
  3. ATENOLOL [Concomitant]
  4. DIFLUCAN [Concomitant]
  5. CIPRO [Concomitant]
  6. ALLOPURINOL [Concomitant]
  7. MAGNESIUM SULFATE [Concomitant]
  8. CHLORHEXIDINE GLUCONATE [Concomitant]

REACTIONS (17)
  - ABDOMINAL PAIN [None]
  - AGITATION [None]
  - DIARRHOEA [None]
  - DYSPNOEA [None]
  - HYPOALBUMINAEMIA [None]
  - HYPOKALAEMIA [None]
  - HYPONATRAEMIA [None]
  - HYPOTENSION [None]
  - NODAL ARRHYTHMIA [None]
  - OEDEMA PERIPHERAL [None]
  - PAIN [None]
  - PALMAR-PLANTAR ERYTHRODYSAESTHESIA SYNDROME [None]
  - RENAL FAILURE [None]
  - RENAL FAILURE ACUTE [None]
  - SEPTIC SHOCK [None]
  - SINUS TACHYCARDIA [None]
  - TRANSAMINASES INCREASED [None]
